FAERS Safety Report 22309725 (Version 1)
Quarter: 2023Q2

REPORT INFORMATION
  Report Type: Spontaneous
  Country: FR (occurrence: FR)
  Receive Date: 20230511
  Receipt Date: 20230511
  Transmission Date: 20230722
  Serious: Yes (Death, Other)
  Sender: FDA-Public Use
  Company Number: FR-SUN PHARMACEUTICAL INDUSTRIES LTD-2023R1-387826

PATIENT
  Age: 51 Year
  Sex: Male

DRUGS (2)
  1. AMPHOTERICIN B [Suspect]
     Active Substance: AMPHOTERICIN B
     Indication: Visceral leishmaniasis
     Dosage: TOTAL DOSE 40 MG/KG
     Route: 042
  2. MEGLUMINE ANTIMONIATE [Concomitant]
     Active Substance: MEGLUMINE ANTIMONIATE
     Indication: Visceral leishmaniasis
     Route: 065

REACTIONS (1)
  - Hepatic failure [Fatal]
